FAERS Safety Report 16953318 (Version 4)
Quarter: 2019Q4

REPORT INFORMATION
  Report Type: Spontaneous
  Country: JP (occurrence: JP)
  Receive Date: 20191023
  Receipt Date: 20191225
  Transmission Date: 20200122
  Serious: Yes (Life-Threatening, Other)
  Sender: FDA-Public Use
  Company Number: JP-TAKEDA-2019TEU012434

PATIENT
  Age: 76 Year
  Sex: Male
  Weight: 49 kg

DRUGS (3)
  1. BOLHEAL [Suspect]
     Active Substance: FACTOR XIII CONCENTRATE (HUMAN)\FIBRINOGEN HUMAN\THROMBIN HUMAN
     Indication: PRODUCT USED FOR UNKNOWN INDICATION
     Dosage: UNK
     Route: 065
  2. SURGICEL [Suspect]
     Active Substance: CELLULOSE, OXIDIZED\DEVICE
     Indication: PRODUCT USED FOR UNKNOWN INDICATION
     Dosage: UNK
     Route: 065
  3. TACHOSIL [Suspect]
     Active Substance: FIBRINOGEN HUMAN\THROMBIN HUMAN
     Indication: HAEMOSTASIS
     Dosage: UNK
     Route: 065
     Dates: start: 20190110, end: 20190110

REACTIONS (3)
  - Superior vena cava syndrome [Unknown]
  - Venous occlusion [Recovered/Resolved]
  - Superior vena cava occlusion [Recovered/Resolved]

NARRATIVE: CASE EVENT DATE: 20190110
